FAERS Safety Report 6755733-9 (Version None)
Quarter: 2010Q2

REPORT INFORMATION
  Report Type: 
  Country: None (occurrence: None)
  Receive Date: 20100604
  Receipt Date: 20100504
  Transmission Date: 20101027
  Serious: No
  Sender: FDA-Public Use
  Company Number: US-BAYER-201015257BCC

PATIENT
  Age: 16 Year
  Sex: Female
  Weight: 63 kg

DRUGS (2)
  1. ALEVE [Suspect]
     Indication: DYSMENORRHOEA
     Dosage: TOTAL DAILY DOSE: 440 MG  UNIT DOSE: 220 MG
     Route: 048
     Dates: start: 20100504
  2. IBUPROFEN [Concomitant]
     Route: 048
     Dates: start: 20100504

REACTIONS (2)
  - DYSMENORRHOEA [None]
  - FATIGUE [None]
